FAERS Safety Report 12393156 (Version 2)
Quarter: 2016Q3

REPORT INFORMATION
  Report Type: Spontaneous
  Country: US (occurrence: US)
  Receive Date: 20160523
  Receipt Date: 20160725
  Transmission Date: 20161109
  Serious: No
  Sender: FDA-Public Use
  Company Number: US-PFIZER INC-2016266473

PATIENT
  Age: 79 Year
  Sex: Male
  Weight: 86 kg

DRUGS (1)
  1. VIAGRA [Suspect]
     Active Substance: SILDENAFIL CITRATE
     Indication: ERECTILE DYSFUNCTION
     Dosage: 50 MG (ONE HALF TABLET OF 100 MG), AS NEEDED
     Route: 048

REACTIONS (3)
  - Drug effect incomplete [Unknown]
  - Counterfeit drug administered [Not Recovered/Not Resolved]
  - Suspected counterfeit product [Not Recovered/Not Resolved]
